FAERS Safety Report 8873486 (Version 1)
Quarter: 2012Q4

REPORT INFORMATION
  Report Type: 
  Country: US (occurrence: US)
  Receive Date: 20121026
  Receipt Date: 20121026
  Transmission Date: 20130627
  Serious: No
  Sender: FDA-Public Use
  Company Number: US-AMGEN-USASP2012050258

PATIENT
  Age: 42 Year
  Sex: Female
  Weight: 129 kg

DRUGS (10)
  1. ENBREL [Suspect]
     Indication: PSORIASIS
     Dosage: 25 mg, 4 times/wk
  2. VECTICAL [Concomitant]
     Dosage: 3 MCG/GM
  3. PROZAC [Concomitant]
     Dosage: 40 mg, UNK
     Route: 048
  4. GABAPENTIN [Concomitant]
     Dosage: 600 mg, UNK
     Route: 048
  5. VITAMIN D /00107901/ [Concomitant]
     Dosage: 50000 unit, UNK
     Route: 048
  6. CALCIUM [Concomitant]
     Dosage: 500 UNK, UNK
     Route: 048
  7. FLONASE [Concomitant]
     Dosage: 0.05 IU, UNK
  8. XANAX [Concomitant]
     Dosage: 0.5 mg, UNK
     Route: 048
  9. MOTRIN [Concomitant]
     Dosage: 800 mg, UNK
     Route: 048
  10. TRAZODONE [Concomitant]
     Dosage: 50 mg, UNK
     Route: 048

REACTIONS (3)
  - Influenza like illness [Recovered/Resolved]
  - Injection site erythema [Unknown]
  - Injection site bruising [Unknown]
